FAERS Safety Report 8022577-X (Version None)
Quarter: 2012Q1

REPORT INFORMATION
  Report Type: 
  Country: None (occurrence: None)
  Receive Date: 20120104
  Receipt Date: 20111221
  Transmission Date: 20120608
  Serious: Yes (Death)
  Sender: FDA-Public Use
  Company Number: US-GLAXOSMITHKLINE-A0944666A

PATIENT
  Age: 68 Year
  Sex: Male

DRUGS (5)
  1. GLYBURIDE [Concomitant]
  2. ZOCOR [Concomitant]
  3. AVANDIA [Suspect]
     Indication: TYPE 2 DIABETES MELLITUS
     Route: 048
     Dates: start: 20010122, end: 20021212
  4. GEMFIBROZIL [Concomitant]
  5. LOPID [Concomitant]

REACTIONS (2)
  - CARDIAC ARREST [None]
  - ACUTE MYOCARDIAL INFARCTION [None]
